FAERS Safety Report 8920607 (Version 1)
Quarter: 2012Q4

REPORT INFORMATION
  Report Type: 
  Country: CA (occurrence: CA)
  Receive Date: 20121121
  Receipt Date: 20121121
  Transmission Date: 20130627
  Serious: Yes (Other)
  Sender: FDA-Public Use
  Company Number: CA-PURDUE-CAN-2012-0003507

PATIENT
  Sex: Female

DRUGS (1)
  1. UNIPHYL [Suspect]
     Indication: ASTHMA

REACTIONS (4)
  - Cardiac disorder [Not Recovered/Not Resolved]
  - Heart rate increased [Recovering/Resolving]
  - Dyspepsia [Recovering/Resolving]
  - Decreased appetite [Recovering/Resolving]
